FAERS Safety Report 8445679-2 (Version None)
Quarter: 2012Q2

REPORT INFORMATION
  Report Type: 
  Country: None (occurrence: None)
  Receive Date: 20120618
  Receipt Date: 20120604
  Transmission Date: 20120825
  Serious: Yes (Hospitalization)
  Sender: FDA-Public Use
  Company Number: DE-BAYER-2012-057244

PATIENT

DRUGS (8)
  1. ANAGRELIDE HCL [Suspect]
     Dosage: 0.5 MG, UNK
     Route: 048
     Dates: start: 20060714
  2. ANAGRELIDE HCL [Suspect]
     Indication: ESSENTIAL THROMBOCYTHAEMIA
     Dosage: UNK
     Route: 048
     Dates: start: 20061004
  3. ANAGRELIDE HCL [Suspect]
     Dosage: 1 MG, UNK
     Route: 048
     Dates: start: 20060717
  4. HYDROXYUREA [Suspect]
     Indication: ESSENTIAL THROMBOCYTHAEMIA
     Dosage: UNK
     Route: 048
     Dates: start: 20061004
  5. ASPIRIN [Suspect]
     Indication: ESSENTIAL THROMBOCYTHAEMIA
     Dosage: 100 MG, UNK
     Route: 048
     Dates: start: 20090222
  6. HYDROXYUREA [Suspect]
     Dosage: 1500 MG, UNK
     Route: 048
     Dates: start: 20050528
  7. HYDROXYUREA [Suspect]
     Dosage: 1000 MG, UNK
     Route: 048
     Dates: start: 20060714
  8. HYDROXYUREA [Suspect]
     Dosage: 500 MG, UNK
     Route: 048
     Dates: start: 20090222

REACTIONS (2)
  - EMBOLISM [None]
  - SPLENIC INFARCTION [None]
